FAERS Safety Report 9476216 (Version 2)
Quarter: 2013Q4

REPORT INFORMATION
  Report Type: Spontaneous
  Country: US (occurrence: US)
  Receive Date: 20130826
  Receipt Date: 20131007
  Transmission Date: 20140711
  Serious: Yes (Hospitalization, Other)
  Sender: FDA-Public Use
  Company Number: US-SANOFI-AVENTIS-2013SA083555

PATIENT
  Age: 49 Year
  Sex: Female

DRUGS (8)
  1. LANTUS [Suspect]
     Route: 065
  2. GABAPENTIN [Concomitant]
  3. SIMVASTATIN [Concomitant]
  4. METFORMIN [Concomitant]
  5. SERTRALINE [Concomitant]
  6. DIPHENHYDRAMINE [Concomitant]
  7. FLUPHENAZINE [Concomitant]
  8. OXCARBAZEPINE [Concomitant]

REACTIONS (17)
  - Confusional state [Unknown]
  - Asthenia [Unknown]
  - Hyperhidrosis [Unknown]
  - Nervousness [Unknown]
  - Injection site pain [Unknown]
  - Drug ineffective [Unknown]
  - Amnesia [Not Recovered/Not Resolved]
  - Diabetic ketoacidosis [Unknown]
  - Feeling abnormal [Unknown]
  - Loss of consciousness [Unknown]
  - Diabetes mellitus inadequate control [Unknown]
  - Limb injury [Unknown]
  - Paraesthesia [Unknown]
  - Polydipsia [Unknown]
  - Vomiting [Unknown]
  - Restlessness [Unknown]
  - Vision blurred [Unknown]
